FAERS Safety Report 24625726 (Version 2)
Quarter: 2024Q4

REPORT INFORMATION
  Report Type: Spontaneous
  Country: FR (occurrence: FR)
  Receive Date: 20241115
  Receipt Date: 20241120
  Transmission Date: 20250114
  Serious: Yes (Other)
  Sender: OTSUKA
  Company Number: None

PATIENT
  Age: 31 Year
  Sex: Male
  Weight: 71 kg

DRUGS (4)
  1. ABILIFY [Suspect]
     Active Substance: ARIPIPRAZOLE
     Indication: Mental disorder
     Dosage: 40 MG, QD
     Route: 048
     Dates: start: 2019
  2. METHYLPHENIDATE HYDROCHLORIDE [Suspect]
     Active Substance: METHYLPHENIDATE HYDROCHLORIDE
     Indication: Mental disorder
     Dosage: 6 DF, QD (EXTENDED-RELEASE CAPSULE)
     Route: 048
     Dates: start: 2020, end: 20241009
  3. PROZAC [Suspect]
     Active Substance: FLUOXETINE HYDROCHLORIDE
     Indication: Mental disorder
     Dosage: 3 DF, QD
     Route: 048
     Dates: start: 2020, end: 20241009
  4. VALIUM [Suspect]
     Active Substance: DIAZEPAM
     Indication: Mental disorder
     Dosage: 1 DF, QD (SCORED TABLET)
     Route: 048
     Dates: start: 2019

REACTIONS (3)
  - Condition aggravated [Recovering/Resolving]
  - Mental disorder [Recovering/Resolving]
  - Suicide attempt [Recovered/Resolved]

NARRATIVE: CASE EVENT DATE: 20200101
